FAERS Safety Report 9661057 (Version 3)
Quarter: 2014Q1

REPORT INFORMATION
  Report Type: Spontaneous
  Country: JP (occurrence: JP)
  Receive Date: 20131031
  Receipt Date: 20140217
  Transmission Date: 20141002
  Serious: Yes (Life-Threatening, Hospitalization)
  Sender: FDA-Public Use
  Company Number: JP-GLAXOSMITHKLINE-B0937750A

PATIENT
  Age: 75 Year
  Sex: Female
  Weight: 52 kg

DRUGS (7)
  1. HYCAMTIN [Suspect]
     Indication: OVARIAN CANCER RECURRENT
     Dosage: 1.7MG PER DAY
     Route: 042
     Dates: start: 20130924, end: 20130926
  2. DEXAMETHASONE [Concomitant]
     Indication: STOMATITIS
     Route: 048
     Dates: start: 20131003
  3. ISOTONIC SODIUM CHLORIDE [Concomitant]
     Route: 042
     Dates: start: 20130924, end: 20130926
  4. DEXART [Concomitant]
     Route: 042
     Dates: start: 20130924, end: 20130926
  5. PANTETHINE [Concomitant]
     Indication: CONSTIPATION
     Dosage: .5MG PER DAY
     Route: 048
     Dates: start: 20130920
  6. LENDORMIN [Concomitant]
     Indication: INSOMNIA
     Route: 048
     Dates: start: 20130928
  7. FAMOTIDINE [Concomitant]
     Indication: ABDOMINAL DISCOMFORT
     Route: 048

REACTIONS (5)
  - Bone marrow failure [Not Recovered/Not Resolved]
  - Malaise [Not Recovered/Not Resolved]
  - Vomiting [Not Recovered/Not Resolved]
  - Nausea [Not Recovered/Not Resolved]
  - Decreased appetite [Not Recovered/Not Resolved]
